FAERS Safety Report 17013132 (Version 1)
Quarter: 2019Q4

REPORT INFORMATION
  Report Type: Spontaneous
  Country: US (occurrence: US)
  Receive Date: 20191001
  Receipt Date: 20191001
  Transmission Date: 20200122
  Serious: No
  Sender: FDA-Public Use
  Company Number: None

PATIENT

DRUGS (2)
  1. EPINEPHRINE. [Suspect]
     Active Substance: EPINEPHRINE
  2. NOREPINEPHRINE. [Suspect]
     Active Substance: NOREPINEPHRINE

REACTIONS (2)
  - Wrong product administered [None]
  - Product appearance confusion [None]
